FAERS Safety Report 6908351-3 (Version None)
Quarter: 2010Q3

REPORT INFORMATION
  Report Type: 
  Country: None (occurrence: None)
  Receive Date: 20100708
  Receipt Date: 20090406
  Transmission Date: 20110219
  Serious: Yes (Other)
  Sender: FDA-Public Use
  Company Number: 2009199129

PATIENT
  Age: 27 Year
  Sex: Female
  Weight: 64.4 kg

DRUGS (5)
  1. CHANTIX [Suspect]
     Indication: SMOKING CESSATION THERAPY
     Dates: start: 20080101
  2. IBUPROFEN [Concomitant]
  3. LORTAB [Concomitant]
  4. ELAVIL [Concomitant]
  5. DEPO-PROVERA SUSPENSION/INJ [Concomitant]

REACTIONS (1)
  - DIABETES MELLITUS [None]
